FAERS Safety Report 19279483 (Version 2)
Quarter: 2021Q2

REPORT INFORMATION
  Report Type: Spontaneous
  Country: PL (occurrence: PL)
  Receive Date: 20210520
  Receipt Date: 20210611
  Transmission Date: 20210717
  Serious: Yes (Hospitalization)
  Sender: FDA-Public Use
  Company Number: PL-MYLANLABS-2021M1029196

PATIENT
  Age: 27 Month
  Sex: Female

DRUGS (5)
  1. CEFTRIAXONE. [Suspect]
     Active Substance: CEFTRIAXONE
     Indication: INFLAMMATORY MARKER INCREASED
  2. VANCOMYCIN [Suspect]
     Active Substance: VANCOMYCIN
     Indication: INFLAMMATORY MARKER INCREASED
     Dosage: UNK
  3. CEFTRIAXONE. [Suspect]
     Active Substance: CEFTRIAXONE
     Indication: MENINGOCOCCAL SEPSIS
     Dosage: UNK
  4. DEXAMETHASONE. [Concomitant]
     Active Substance: DEXAMETHASONE
     Indication: INFLAMMATORY MARKER INCREASED
     Dosage: UNK
  5. CLARITHROMYCIN. [Suspect]
     Active Substance: CLARITHROMYCIN
     Indication: ATYPICAL PNEUMONIA
     Dosage: UNK

REACTIONS (2)
  - Oral candidiasis [Unknown]
  - Urogenital infection fungal [Unknown]
